FAERS Safety Report 19227592 (Version 1)
Quarter: 2021Q2

REPORT INFORMATION
  Report Type: Other
  Country: US (occurrence: US)
  Receive Date: 20210507
  Receipt Date: 20210507
  Transmission Date: 20210717
  Serious: Yes (Death, Other)
  Sender: FDA-Public Use
  Company Number: US-TECHDOW-2021TECHDOW000566

PATIENT
  Age: 69 Year
  Sex: Male

DRUGS (1)
  1. HEPARIN SODIUM INJECTION, USP (PRESERVATIVE FREE) [Suspect]
     Active Substance: HEPARIN SODIUM
     Indication: ANTICOAGULANT THERAPY
     Route: 041

REACTIONS (4)
  - Cardiac arrest [Fatal]
  - Peripheral swelling [Unknown]
  - Deep vein thrombosis [Unknown]
  - Erythema [Unknown]
